FAERS Safety Report 8112451-2 (Version None)
Quarter: 2012Q1

REPORT INFORMATION
  Report Type: 
  Country: None (occurrence: None)
  Receive Date: 20120203
  Receipt Date: 20120130
  Transmission Date: 20120608
  Serious: Yes (Other)
  Sender: FDA-Public Use
  Company Number: IR-B.I. PHARMACEUTICALS,INC./RIDGEFIELD-2012-EU-00701GD

PATIENT

DRUGS (1)
  1. RANITIDINE [Suspect]

REACTIONS (2)
  - DYSPNOEA [None]
  - PRURITUS [None]
